FAERS Safety Report 12790174 (Version 3)
Quarter: 2017Q3

REPORT INFORMATION
  Report Type: Report from Study
  Country: US (occurrence: US)
  Receive Date: 20160928
  Receipt Date: 20170713
  Transmission Date: 20171127
  Serious: No
  Sender: FDA-Public Use
  Company Number: GXBR2016US002568

PATIENT
  Sex: Female

DRUGS (1)
  1. GLATOPA [Suspect]
     Active Substance: GLATIRAMER ACETATE
     Indication: MULTIPLE SCLEROSIS
     Dosage: 20 MG, QD
     Route: 065
     Dates: end: 201607

REACTIONS (10)
  - Haemorrhage subcutaneous [Not Recovered/Not Resolved]
  - Muscle spasms [Recovering/Resolving]
  - Injection site pain [Recovering/Resolving]
  - Skin papilloma [Not Recovered/Not Resolved]
  - Immediate post-injection reaction [Unknown]
  - Injection site reaction [Recovering/Resolving]
  - Flushing [Unknown]
  - Skin irritation [Recovering/Resolving]
  - Contusion [Recovering/Resolving]
  - Palpitations [Unknown]
